FAERS Safety Report 5663496-3 (Version None)
Quarter: 2008Q1

REPORT INFORMATION
  Report Type: 
  Country: None (occurrence: None)
  Receive Date: 20080307
  Receipt Date: 20080222
  Transmission Date: 20080703
  Serious: Yes (Death)
  Sender: FDA-Public Use
  Company Number: TRP_01020_2008

PATIENT
  Sex: Female
  Weight: 63.5036 kg

DRUGS (14)
  1. RIBAVIRIN [Suspect]
     Indication: HEPATITIS C
     Dosage: 1 DF BID [400 MG/600 MG] ORAL
     Route: 048
     Dates: start: 20070911
  2. PEGASYS [Suspect]
     Indication: HEPATITIS C
     Dosage: 180 ?G 1/WEEK SUBCUTANEOUS
     Route: 058
     Dates: start: 20070911
  3. ISOPROPYL ALCOHOL COMPOUND LIQUID [Suspect]
     Indication: DRUG USE FOR UNKNOWN INDICATION
     Dosage: DF
  4. ACETONE [Suspect]
     Indication: DRUG USE FOR UNKNOWN INDICATION
     Dosage: DF
  5. PSEUDOEPHEDRINE HCL [Suspect]
     Indication: DRUG USE FOR UNKNOWN INDICATION
     Dosage: DF
  6. METHAMPHETAMINE HYDROCHLORIDE [Suspect]
     Indication: DRUG USE FOR UNKNOWN INDICATION
     Dosage: DF
  7. LEXAPRO [Suspect]
     Indication: DEPRESSION
     Dosage: 40 MG QD
     Dates: start: 20071105
  8. REMERON [Suspect]
     Indication: DEPRESSION
     Dosage: AS NEEDED
     Dates: start: 20071105
  9. REMERON [Suspect]
     Indication: INSOMNIA
     Dosage: AS NEEDED
     Dates: start: 20071105
  10. CANNABINOIDS [Suspect]
     Indication: DRUG USE FOR UNKNOWN INDICATION
     Dosage: DF
  11. CHLORPHENIRAMINE MALEATE [Suspect]
     Indication: DRUG USE FOR UNKNOWN INDICATION
     Dosage: DF
  12. BUSPAR [Concomitant]
  13. PRILOSEC [Concomitant]
  14. RISPERDAL [Concomitant]

REACTIONS (5)
  - ANXIETY [None]
  - DRUG TOXICITY [None]
  - FATIGUE [None]
  - PAIN [None]
  - TREATMENT NONCOMPLIANCE [None]
